FAERS Safety Report 10543993 (Version 1)
Quarter: 2014Q4

REPORT INFORMATION
  Report Type: Spontaneous
  Country: US (occurrence: None)
  Receive Date: 20141024
  Receipt Date: 20141024
  Transmission Date: 20150529
  Serious: Yes (Other)
  Sender: FDA-Public Use
  Company Number: None

PATIENT
  Age: 54 Year
  Sex: Female

DRUGS (19)
  1. OMEPRAZOLE (PRILOSEC) [Concomitant]
  2. INTERFERON BETA-1B(EXTAVIA) [Concomitant]
  3. CIPROFLOXACIN(CIPRO) [Concomitant]
  4. CYANOCOBALAMIN(VITAMIN B-212) [Concomitant]
  5. CYCLOBENZAPRIN(FLEXERIL) [Concomitant]
  6. AMANTADINE(SYMMETREL) [Concomitant]
  7. TRIMETHOPRIM-POLYMXIN B(POLYTRIM) [Concomitant]
  8. ATORVASTATIN(LIPITOR) [Concomitant]
  9. AMPYRA [Suspect]
     Active Substance: DALFAMPRIDINE
     Route: 048
     Dates: start: 20130508
  10. HYDROCODONE-ACETAMIOPHEN(NORCO) [Concomitant]
  11. ALPRAZOLAM(XANAX) [Concomitant]
  12. CHOLECALCIFEROL, VITAMIN D3, (VITAMIN D3) [Concomitant]
  13. MELOXICAM(MOBIC) [Concomitant]
  14. TRAZODONE(DESYREL) [Concomitant]
  15. CITALOPRAM(CELEXA) [Concomitant]
  16. HYDROCHLOROTHIAZIDE(ESIDRIX/HYDRODIURIL) [Concomitant]
  17. GLATIRAMER(COPAXONE) [Concomitant]
  18. LISINOPRIL(PRINVIL/ZESTRIL) [Concomitant]
  19. SUMATRIPTAN(IMITREX) [Concomitant]

REACTIONS (4)
  - Fatigue [None]
  - Urinary tract infection [None]
  - Movement disorder [None]
  - Gait disturbance [None]

NARRATIVE: CASE EVENT DATE: 20141009
